FAERS Safety Report 4988445-2 (Version None)
Quarter: 2006Q2

REPORT INFORMATION
  Report Type: 
  Country: None (occurrence: None)
  Receive Date: 20060502
  Receipt Date: 20060420
  Transmission Date: 20061013
  Serious: Yes (Hospitalization)
  Sender: FDA-Public Use
  Company Number: PHHO2006ES06506

PATIENT
  Age: 54 Year
  Sex: Male
  Weight: 107.5 kg

DRUGS (3)
  1. MYCOPHENOLATE MOFETIL COMP-MYC+ [Suspect]
     Indication: HEART TRANSPLANT
     Dosage: 3000 MG, QD
     Route: 048
     Dates: start: 20051104
  2. DEZACOR [Suspect]
     Indication: HEART TRANSPLANT
     Route: 048
     Dates: start: 20051104
  3. NEORAL [Suspect]
     Dosage: 300 MG, UNK
     Dates: start: 20051104

REACTIONS (2)
  - PERICARDIAL DRAINAGE [None]
  - PERICARDIAL EFFUSION [None]
